FAERS Safety Report 7343335-5 (Version None)
Quarter: 2011Q1

REPORT INFORMATION
  Report Type: 
  Country: None (occurrence: None)
  Receive Date: 20110310
  Receipt Date: 20110223
  Transmission Date: 20110831
  Serious: Yes (Hospitalization)
  Sender: FDA-Public Use
  Company Number: US-ENDO PHARMACEUTICALS INC.-PRAC20110002

PATIENT
  Sex: Female

DRUGS (1)
  1. PROPOXYPHENE HCL W/ APAP [Suspect]
     Indication: PAIN
     Dosage: 100 MG
     Route: 048
     Dates: start: 19800101, end: 20101201

REACTIONS (2)
  - MYOCARDIAL INFARCTION [None]
  - PAIN [None]
